FAERS Safety Report 8250669-9 (Version None)
Quarter: 2012Q2

REPORT INFORMATION
  Report Type: 
  Country: None (occurrence: None)
  Receive Date: 20120402
  Receipt Date: 20120329
  Transmission Date: 20120825
  Serious: Yes (Hospitalization, Other)
  Sender: FDA-Public Use
  Company Number: IT-PFIZER INC-2012076297

PATIENT
  Age: 71 Year
  Sex: Male

DRUGS (7)
  1. ATORVASTATIN CALCIUM [Concomitant]
  2. ARVENUM [Concomitant]
  3. CARDURA [Suspect]
     Indication: HYPERTENSION
     Dosage: 1 UNIT DOSE DAILY
     Route: 048
     Dates: start: 20120306, end: 20120306
  4. ENOXAPARIN SODIUM [Concomitant]
  5. LIORESAL [Concomitant]
  6. VENLAFAXINE HYDROCHLORIDE [Concomitant]
     Dosage: 75 MG, UNK
  7. CLOPIDOGREL [Concomitant]
     Dosage: 75 MG, UNK

REACTIONS (6)
  - CONFUSIONAL STATE [None]
  - CLONIC CONVULSION [None]
  - VASCULAR ENCEPHALOPATHY [None]
  - SYNCOPE [None]
  - VOMITING [None]
  - BLOOD PRESSURE INCREASED [None]
